FAERS Safety Report 6618306-4 (Version None)
Quarter: 2010Q1

REPORT INFORMATION
  Report Type: 
  Country: None (occurrence: None)
  Receive Date: 20100302
  Receipt Date: 20100224
  Transmission Date: 20100710
  Serious: Yes (Other)
  Sender: FDA-Public Use
  Company Number: 1000012021

PATIENT
  Sex: Male

DRUGS (3)
  1. CELEXA [Suspect]
     Dosage: 60 MG (60 MG, 1IN 1 D), TRANSPLACENTAL
     Route: 064
  2. VICODIN [Suspect]
     Dosage: TRANSPLACENTAL
     Route: 064
  3. PHENERGAN HCL [Suspect]
     Dosage: TRANSPLACENTAL
     Route: 064

REACTIONS (6)
  - AGITATION NEONATAL [None]
  - CAESAREAN SECTION [None]
  - DRUG WITHDRAWAL SYNDROME NEONATAL [None]
  - MATERNAL DRUGS AFFECTING FOETUS [None]
  - MECONIUM INCREASED [None]
  - TREMOR NEONATAL [None]
